FAERS Safety Report 8439322-6 (Version None)
Quarter: 2012Q2

REPORT INFORMATION
  Report Type: 
  Country: None (occurrence: None)
  Receive Date: 20120615
  Receipt Date: 20120613
  Transmission Date: 20120825
  Serious: Yes (Other)
  Sender: FDA-Public Use
  Company Number: AU-PFIZER INC-2012142795

PATIENT
  Age: 45 Year
  Sex: Male

DRUGS (1)
  1. VARENICLINE TARTRATE [Suspect]
     Indication: SMOKING CESSATION THERAPY
     Dosage: 1 MG, 2X/DAY

REACTIONS (4)
  - MYOCARDIAL INFARCTION [None]
  - PAIN IN EXTREMITY [None]
  - STRESS AT WORK [None]
  - DYSPNOEA [None]
